FAERS Safety Report 5228688-6 (Version None)
Quarter: 2007Q1

REPORT INFORMATION
  Report Type: 
  Country: None (occurrence: None)
  Receive Date: 20070205
  Receipt Date: 20070131
  Transmission Date: 20070707
  Serious: Yes (Hospitalization)
  Sender: FDA-Public Use
  Company Number: DE-GLAXOSMITHKLINE-D0052179A

PATIENT
  Age: 44 Year
  Sex: Male
  Weight: 111 kg

DRUGS (3)
  1. QUILONUM RETARD [Suspect]
     Dosage: 450MG SEE DOSAGE TEXT
     Route: 048
     Dates: start: 20070130, end: 20070130
  2. CHLORPROMAZIN [Suspect]
     Dosage: 1TAB SEE DOSAGE TEXT
     Route: 048
     Dates: start: 20070130, end: 20070130
  3. ZELDOX [Suspect]
     Dosage: 1TAB SEE DOSAGE TEXT
     Route: 048
     Dates: start: 20070130, end: 20070130

REACTIONS (3)
  - INTENTIONAL OVERDOSE [None]
  - SUICIDE ATTEMPT [None]
  - VOMITING [None]
